FAERS Safety Report 9943292 (Version 3)
Quarter: 2014Q1

REPORT INFORMATION
  Report Type: Report from Study
  Country: US (occurrence: US)
  Receive Date: 20140303
  Receipt Date: 20140327
  Transmission Date: 20141002
  Serious: Yes (Death, Hospitalization)
  Sender: FDA-Public Use
  Company Number: US-B.I. PHARMACEUTICALS,INC./RIDGEFIELD-2014-BI-08310BI

PATIENT
  Age: 73 Year
  Sex: Male
  Weight: 79 kg

DRUGS (18)
  1. GILOTRIF [Suspect]
     Indication: NON-SMALL CELL LUNG CANCER
     Dosage: 40 MG
     Route: 048
     Dates: start: 20140222, end: 20140224
  2. ADVIL [Concomitant]
     Dosage: 1200 MG
     Route: 065
  3. ALBUTEROL NEBULIZER [Concomitant]
     Route: 065
  4. CALCIUM VITAMIN D [Concomitant]
     Route: 065
  5. CLONIDINE [Concomitant]
     Dosage: 0.4 MG
     Route: 065
  6. CRESTOR [Concomitant]
     Dosage: 40 MG
     Route: 065
  7. HYDROCODONE [Concomitant]
     Route: 065
  8. KLOR-CON [Concomitant]
     Dosage: 10 MG
     Route: 065
  9. LANTUS [Concomitant]
     Route: 065
  10. LASIX [Concomitant]
     Dosage: 20 MG
     Route: 065
  11. NEURONTIN [Concomitant]
     Dosage: 900 MG
     Route: 065
  12. PRESER VISION LUTEIN [Concomitant]
     Route: 065
  13. TOPROL XL [Concomitant]
     Dosage: 100 MG
     Route: 065
  14. TRICOR [Concomitant]
     Dosage: 145 MG
     Route: 065
  15. XGEVA [Concomitant]
     Dosage: FORMULATION: INFUSION
     Route: 065
  16. TARCEVA [Concomitant]
     Route: 065
  17. RADIATION [Concomitant]
     Route: 065
  18. CPAP MACHINE AT NIGHT [Concomitant]
     Route: 065

REACTIONS (3)
  - Death [Fatal]
  - Dysuria [Not Recovered/Not Resolved]
  - Vision blurred [Not Recovered/Not Resolved]
